FAERS Safety Report 7557308-0 (Version None)
Quarter: 2011Q2

REPORT INFORMATION
  Report Type: 
  Country: None (occurrence: None)
  Receive Date: 20110620
  Receipt Date: 20101208
  Transmission Date: 20111010
  Serious: Yes (Other)
  Sender: FDA-Public Use
  Company Number: PHHY2010DE92258

PATIENT
  Age: 60 Year
  Sex: Male

DRUGS (10)
  1. ZOLEDRONIC ACID [Suspect]
     Dosage: UNK UKN, UNK
     Route: 042
  2. ALENDRONATE SODIUM [Suspect]
     Route: 042
  3. CYCLOPHOSPHAMIDE [Concomitant]
  4. DEXAMETHASONE [Concomitant]
  5. EPIRUBICIN [Concomitant]
  6. BORTEZOMIB [Concomitant]
  7. THALIDOMIDE [Concomitant]
     Dosage: UNK UKN, UNK
     Route: 042
  8. LENALIDOMIDE [Concomitant]
  9. VINCRISTINE [Concomitant]
  10. MELPHALAN HYDROCHLORIDE [Concomitant]

REACTIONS (1)
  - OSTEONECROSIS OF JAW [None]
